FAERS Safety Report 23573164 (Version 5)
Quarter: 2024Q3

REPORT INFORMATION
  Report Type: Report from Study
  Country: US (occurrence: US)
  Receive Date: 20240227
  Receipt Date: 20240717
  Transmission Date: 20241017
  Serious: Yes (Other)
  Sender: ABBVIE
  Company Number: US-ABBVIE-5654046

PATIENT
  Sex: Female
  Weight: 59 kg

DRUGS (3)
  1. RINVOQ [Suspect]
     Active Substance: UPADACITINIB
     Indication: Colitis ulcerative
     Dosage: FORM STRENGTH:15 MILLIGRAM, LAST ADMIN DATE: MAR 2023. 1ST REGIMEN
     Route: 048
     Dates: start: 20230327
  2. RINVOQ [Suspect]
     Active Substance: UPADACITINIB
     Indication: Colitis ulcerative
     Dosage: FIRST ADMIN DATE-MAR 2023, 30 MILLIGRAM, 2ND REGIMEN
     Route: 048
  3. RINVOQ [Suspect]
     Active Substance: UPADACITINIB
     Indication: Colitis ulcerative
     Dosage: LAST REGIMEN
     Route: 048
     Dates: start: 20240413

REACTIONS (11)
  - Spider vein [Not Recovered/Not Resolved]
  - Vulvovaginal mycotic infection [Unknown]
  - Laboratory test abnormal [Unknown]
  - Acne [Not Recovered/Not Resolved]
  - Menstrual disorder [Not Recovered/Not Resolved]
  - Diarrhoea [Recovered/Resolved]
  - Drug ineffective [Unknown]
  - Chest discomfort [Unknown]
  - Dyspnoea [Unknown]
  - Low density lipoprotein increased [Unknown]
  - Fungal skin infection [Unknown]

NARRATIVE: CASE EVENT DATE: 20230101
